FAERS Safety Report 15788145 (Version 2)
Quarter: 2019Q2

REPORT INFORMATION
  Report Type: Spontaneous
  Country: ES (occurrence: ES)
  Receive Date: 20190104
  Receipt Date: 20190405
  Transmission Date: 20190711
  Serious: Yes (Life-Threatening, Hospitalization, Other)
  Sender: FDA-Public Use
  Company Number: ES-ACCORD-098245

PATIENT
  Age: 27 Year
  Sex: Male
  Weight: 52 kg

DRUGS (8)
  1. TACROLIMUS. [Suspect]
     Active Substance: TACROLIMUS
     Indication: IMMUNOSUPPRESSION
  2. PROGRAF [Suspect]
     Active Substance: TACROLIMUS\TACROLIMUS ANHYDROUS
     Indication: IMMUNOSUPPRESSION
     Dosage: 7 MG, Q12H,TITRATED BY BLOOD LEVELS
  3. SULFAMETHOXAZOLE/TRIMETHOPRIM [Concomitant]
     Indication: ANTIBIOTIC PROPHYLAXIS
     Dosage: 160/800 MG
  4. COLISTIN [Concomitant]
     Active Substance: COLISTIN
     Indication: ANTIBIOTIC PROPHYLAXIS
     Dosage: 2X10^6  INTERNATIONAL UNITS (IU)/12H
  5. METHYLPREDNISOLONE. [Concomitant]
     Active Substance: METHYLPREDNISOLONE
     Indication: IMMUNOSUPPRESSION
  6. GANCICLOVIR. [Concomitant]
     Active Substance: GANCICLOVIR
     Indication: ANTIBIOTIC PROPHYLAXIS
  7. DEFLAZACORT [Suspect]
     Active Substance: DEFLAZACORT
     Indication: IMMUNOSUPPRESSION
  8. MYCOPHENOLIC ACID. [Suspect]
     Active Substance: MYCOPHENOLIC ACID
     Indication: IMMUNOSUPPRESSION

REACTIONS (5)
  - Burkholderia cepacia complex infection [Recovered/Resolved]
  - Septic shock [Recovering/Resolving]
  - Multiple organ dysfunction syndrome [Recovered/Resolved]
  - Respiratory failure [Recovered/Resolved]
  - Pneumonia bacterial [Recovered/Resolved]
